FAERS Safety Report 5581893-1 (Version None)
Quarter: 2008Q1

REPORT INFORMATION
  Report Type: 
  Country: None (occurrence: None)
  Receive Date: 20080104
  Receipt Date: 20071227
  Transmission Date: 20080703
  Serious: Yes (Other)
  Sender: FDA-Public Use
  Company Number: PHBS2007JP20227

PATIENT
  Age: 53 Year
  Sex: Male
  Weight: 60 kg

DRUGS (4)
  1. TEGRETOL [Suspect]
     Indication: EPILEPSY
     Dosage: 400 MG, TID
     Route: 048
     Dates: start: 20070802, end: 20071126
  2. RIVOTRIL [Concomitant]
     Indication: EPILEPSY
     Dosage: 2 MG, TID
     Route: 048
     Dates: start: 20070914
  3. DEPAKENE [Concomitant]
     Indication: EPILEPSY
     Dosage: 700 MG, TID
     Route: 048
     Dates: start: 20070802, end: 20070905
  4. PHENYTOIN SODIUM CAP [Concomitant]
     Indication: EPILEPSY
     Dosage: 800 MG/DAY
     Route: 048
     Dates: start: 20070905, end: 20071024

REACTIONS (4)
  - DRUG INEFFECTIVE [None]
  - HYPOGLYCAEMIA [None]
  - MUSCLE ATROPHY [None]
  - OEDEMA PERIPHERAL [None]
